FAERS Safety Report 7751493-3 (Version None)
Quarter: 2011Q3

REPORT INFORMATION
  Report Type: 
  Country: None (occurrence: None)
  Receive Date: 20110914
  Receipt Date: 20110831
  Transmission Date: 20111222
  Serious: Yes (Other)
  Sender: FDA-Public Use
  Company Number: PHHY2011BR66017

PATIENT
  Sex: Female

DRUGS (2)
  1. VERPAMIL HCL [Concomitant]
     Indication: HYPERTENSION
     Dosage: 120 MG, BID
     Route: 048
     Dates: start: 20090101
  2. DIOVAN HCT [Suspect]
     Indication: HYPERTENSION
     Dosage: 1 DF (80/12.5MG), DAILY
     Route: 048
     Dates: start: 20090101

REACTIONS (4)
  - MUSCLE SPASMS [None]
  - DIZZINESS [None]
  - MITRAL VALVE PROLAPSE [None]
  - ASTHENIA [None]
